FAERS Safety Report 18394880 (Version 1)
Quarter: 2020Q4

REPORT INFORMATION
  Report Type: Spontaneous
  Country: GB (occurrence: GB)
  Receive Date: 20201017
  Receipt Date: 20201017
  Transmission Date: 20210114
  Serious: Yes (Other)
  Sender: FDA-Public Use
  Company Number: NVSC2020GB276913

PATIENT
  Age: 51 Year
  Sex: Female
  Weight: 51.25 kg

DRUGS (1)
  1. CLINDAMYCIN. [Suspect]
     Active Substance: CLINDAMYCIN
     Indication: ABSCESS ORAL
     Dosage: 1200 MG, QD
     Route: 048
     Dates: start: 20200409, end: 20200410

REACTIONS (2)
  - Skin exfoliation [Recovered/Resolved with Sequelae]
  - Dyspepsia [Recovered/Resolved with Sequelae]

NARRATIVE: CASE EVENT DATE: 20200409
